FAERS Safety Report 25598542 (Version 1)
Quarter: 2025Q3

REPORT INFORMATION
  Report Type: Spontaneous
  Country: EU (occurrence: EU)
  Receive Date: 20250723
  Receipt Date: 20250723
  Transmission Date: 20251021
  Serious: Yes (Death)
  Sender: AMGEN
  Company Number: EU-AMGEN-ESPSP2025140783

PATIENT

DRUGS (2)
  1. ROMIPLOSTIM [Suspect]
     Active Substance: ROMIPLOSTIM
     Indication: Immune thrombocytopenia
     Route: 065
  2. FOSTAMATINIB DISODIUM [Suspect]
     Active Substance: FOSTAMATINIB DISODIUM
     Indication: Immune thrombocytopenia
     Route: 065

REACTIONS (7)
  - Death [Fatal]
  - Hypertension [Unknown]
  - Adverse event [Unknown]
  - Toxicity to various agents [Unknown]
  - Diarrhoea [Unknown]
  - Headache [Unknown]
  - Haemorrhage [Unknown]
